FAERS Safety Report 20299803 (Version 1)
Quarter: 2022Q1

REPORT INFORMATION
  Report Type: Spontaneous
  Country: US (occurrence: US)
  Receive Date: 20220105
  Receipt Date: 20220105
  Transmission Date: 20220424
  Serious: No
  Sender: FDA-Public Use
  Company Number: US-SIGMAPHARM LABORATORIES, LLC-2021SIG00022

PATIENT
  Age: 64 Year
  Sex: Female
  Weight: 63.492 kg

DRUGS (13)
  1. LIOTHYRONINE SODIUM [Suspect]
     Active Substance: LIOTHYRONINE SODIUM
     Indication: Hypothyroidism
     Dosage: UNK, TITRATING DOSE UP
     Route: 048
     Dates: start: 20210212, end: 2021
  2. LIOTHYRONINE SODIUM [Suspect]
     Active Substance: LIOTHYRONINE SODIUM
     Dosage: UNK, AROUND 40-45 ?G DAILY
     Route: 048
     Dates: start: 20210212, end: 2021
  3. LIOTHYRONINE SODIUM [Suspect]
     Active Substance: LIOTHYRONINE SODIUM
     Dosage: 12.5 ?G OR 15 ?G, 3X/DAY (AVERAGE DAILY DOSE IS 42.5-45 ?G)
     Route: 048
     Dates: start: 202105, end: 2021
  4. LIOTHYRONINE SODIUM [Suspect]
     Active Substance: LIOTHYRONINE SODIUM
     Dosage: 2.5 ?G, UP TO 1X/DAY AS NEEDED
     Route: 048
     Dates: start: 202105, end: 2021
  5. LIOTHYRONINE SODIUM [Suspect]
     Active Substance: LIOTHYRONINE SODIUM
     Dosage: 12.5 ?G OR 15 ?G, 3X/DAY (AVERAGE DAILY DOSE IS 42.5-45 ?G)
     Route: 048
     Dates: start: 2021
  6. LIOTHYRONINE SODIUM [Suspect]
     Active Substance: LIOTHYRONINE SODIUM
     Dosage: 2.5 ?G, UP TO 1X/DAY AS NEEDED
     Route: 048
     Dates: start: 2021
  7. LIOTHYRONINE SODIUM [Suspect]
     Active Substance: LIOTHYRONINE SODIUM
     Indication: Hypothyroidism
     Dosage: TITRATING UP
     Dates: start: 2021, end: 2021
  8. VITAMIN B12 [Concomitant]
     Active Substance: CYANOCOBALAMIN
     Dosage: 1000 MCG, EVERY 10 - 14 DAYS
  9. VITAMIN D [Concomitant]
     Active Substance: VITAMIN D NOS
     Dosage: 2000 IU, 1X/DAY MORNING
  10. DESICCATED LIVER [Concomitant]
  11. TALLOW [Concomitant]
  12. BOS TAURUS BILE [Concomitant]
     Active Substance: BOS TAURUS BILE
  13. UNSPECIFIED SUPPLEMENT THAT ^HAS GALLBLADDER IN IT^ [Concomitant]

REACTIONS (15)
  - Arthritis [Recovered/Resolved]
  - Therapeutic product effect variable [Recovered/Resolved]
  - Therapeutic product effect incomplete [Recovered/Resolved]
  - Feeling abnormal [Recovered/Resolved]
  - Asthenia [Recovered/Resolved]
  - Depressed level of consciousness [Recovered/Resolved]
  - Sleep disorder [Recovered/Resolved]
  - Abnormal faeces [Recovered/Resolved]
  - Oral discomfort [Recovered/Resolved]
  - Reaction to excipient [Recovered/Resolved]
  - Tri-iodothyronine abnormal [Recovered/Resolved]
  - Thyroxine abnormal [Recovered/Resolved]
  - Blood thyroid stimulating hormone abnormal [Recovered/Resolved]
  - Hypersensitivity [Recovered/Resolved]
  - Unevaluable event [Recovered/Resolved]

NARRATIVE: CASE EVENT DATE: 20210101
